FAERS Safety Report 15963464 (Version 1)
Quarter: 2019Q1

REPORT INFORMATION
  Report Type: Spontaneous
  Country: US (occurrence: US)
  Receive Date: 20190214
  Receipt Date: 20190214
  Transmission Date: 20190417
  Serious: Yes (Other)
  Sender: FDA-Public Use
  Company Number: US-ALLERGAN-1857892US

PATIENT
  Sex: Male

DRUGS (2)
  1. OZURDEX [Suspect]
     Active Substance: DEXAMETHASONE
     Indication: CHORIORETINITIS
     Dosage: 0.7 MG, SINGLE
     Route: 031
     Dates: start: 20181130, end: 20181130
  2. AVASTIN [Concomitant]
     Active Substance: BEVACIZUMAB
     Indication: CHORIORETINITIS
     Route: 031

REACTIONS (1)
  - Device dislocation [Not Recovered/Not Resolved]
